FAERS Safety Report 9501656 (Version 1)
Quarter: 2013Q3

REPORT INFORMATION
  Report Type: Report from Study
  Country: GB (occurrence: GB)
  Receive Date: 20130905
  Receipt Date: 20130905
  Transmission Date: 20140515
  Serious: Yes (Death, Hospitalization)
  Sender: FDA-Public Use
  Company Number: GB-ROCHE-1269783

PATIENT
  Age: 67 Year
  Sex: Female

DRUGS (18)
  1. RITUXIMAB [Suspect]
     Indication: RHEUMATOID ARTHRITIS
     Dosage: X 2 CYCLES 1000 MG
     Route: 042
     Dates: start: 20130311
  2. RITUXIMAB [Suspect]
     Dosage: 2ND CYCLE
     Route: 042
     Dates: start: 20130325
  3. ISOSORBIDE MONONITRAT [Concomitant]
     Indication: MYOCARDIAL ISCHAEMIA
     Route: 048
  4. RANITIDINE [Concomitant]
     Route: 048
  5. ENALAPRIL [Concomitant]
     Route: 048
  6. CETIRIZINE [Concomitant]
     Route: 048
  7. FUROSEMIDE [Concomitant]
     Indication: HYPERTENSION
     Route: 048
  8. FUROSEMIDE [Concomitant]
     Route: 065
  9. ATORVASTATIN [Concomitant]
     Indication: HYPERTENSION
     Route: 048
  10. ALENDRONIC ACID [Concomitant]
     Indication: OSTEOPOROSIS
     Route: 048
  11. THYROXINE [Concomitant]
     Indication: HYPOTHYROIDISM
     Route: 048
  12. BENDROFLUMETHIAZIDE [Concomitant]
     Indication: HYPERTENSION
     Route: 048
     Dates: start: 20130508, end: 201307
  13. GLYCERYL TRINITRATE [Concomitant]
     Indication: MYOCARDIAL ISCHAEMIA
     Route: 048
     Dates: start: 20130508
  14. GLYCERYL TRINITRATE [Concomitant]
     Indication: DYSPNOEA EXERTIONAL
  15. HYPROMELLOSE EYE DROPS [Concomitant]
     Indication: SJOGREN^S SYNDROME
     Dosage: 1 APPLICATION
     Route: 061
  16. CODAMOL [Concomitant]
     Route: 048
  17. PREDNISOLONE [Concomitant]
     Route: 048
  18. LEFLUNOMIDE [Concomitant]
     Route: 048

REACTIONS (5)
  - Sepsis [Fatal]
  - Multi-organ failure [Fatal]
  - Staphylococcal bacteraemia [Fatal]
  - Device related infection [Recovering/Resolving]
  - Rheumatoid arthritis [Recovering/Resolving]
